FAERS Safety Report 21978598 (Version 3)
Quarter: 2023Q2

REPORT INFORMATION
  Report Type: Spontaneous
  Country: US (occurrence: US)
  Receive Date: 20230210
  Receipt Date: 20230411
  Transmission Date: 20230722
  Serious: No
  Sender: FDA-Public Use
  Company Number: US-PFIZER INC-PV202300024699

PATIENT
  Age: 75 Year
  Sex: Female
  Weight: 74.83 kg

DRUGS (4)
  1. XALKORI [Suspect]
     Active Substance: CRIZOTINIB
     Indication: Lung neoplasm malignant
     Dosage: 250 MG, 2X/DAY
     Dates: start: 2013
  2. XALKORI [Suspect]
     Active Substance: CRIZOTINIB
     Indication: Brain cancer metastatic
  3. XALKORI [Suspect]
     Active Substance: CRIZOTINIB
     Indication: Anaplastic lymphoma kinase gene mutation
  4. LEVETIRACETAM [Concomitant]
     Active Substance: LEVETIRACETAM
     Dosage: UNK
     Dates: start: 2021

REACTIONS (1)
  - Neoplasm progression [Not Recovered/Not Resolved]

NARRATIVE: CASE EVENT DATE: 20210101
